FAERS Safety Report 5120559-9 (Version None)
Quarter: 2006Q4

REPORT INFORMATION
  Report Type: 
  Country: None (occurrence: None)
  Receive Date: 20061002
  Receipt Date: 20060925
  Transmission Date: 20070319
  Serious: Yes (Hospitalization)
  Sender: FDA-Public Use
  Company Number: 056-C5013-06080825

PATIENT
  Age: 83 Year
  Sex: Female
  Weight: 55 kg

DRUGS (6)
  1. CC-5013 (LENALIDOMIDE) (CAPSULES) [Suspect]
     Indication: MULTIPLE MYELOMA
     Dosage: 25 MG, 1 IN 1 D, ORAL; 10 M G, 1 IN 1 D, ORAL
     Route: 048
     Dates: start: 20060709, end: 20060730
  2. CC-5013 (LENALIDOMIDE) (CAPSULES) [Suspect]
     Indication: MULTIPLE MYELOMA
     Dosage: 25 MG, 1 IN 1 D, ORAL; 10 M G, 1 IN 1 D, ORAL
     Route: 048
     Dates: start: 20060901
  3. DEXAMETHASONE TAB [Suspect]
     Indication: MULTIPLE MYELOMA
     Dosage: 20 MG, 2 IN 1 WK, ORAL
     Route: 048
     Dates: start: 20060709, end: 20060730
  4. PREVISCAN (FLUINDIONE) [Concomitant]
  5. AMIODARONE HCL [Concomitant]
  6. FUROSEMIDE [Concomitant]

REACTIONS (4)
  - ANAEMIA [None]
  - ASTHENIA [None]
  - BALANCE DISORDER [None]
  - VERTIGO [None]
